FAERS Safety Report 7994078-6 (Version None)
Quarter: 2011Q4

REPORT INFORMATION
  Report Type: 
  Country: None (occurrence: None)
  Receive Date: 20111220
  Receipt Date: 20111208
  Transmission Date: 20120403
  Serious: Yes (Hospitalization)
  Sender: FDA-Public Use
  Company Number: US-BAYER-2011-040437

PATIENT
  Age: 30 Year
  Sex: Female
  Weight: 90.703 kg

DRUGS (6)
  1. MULTI-VITAMINS [Concomitant]
  2. YAZ [Suspect]
     Indication: CONTRACEPTION
     Dosage: UNK
     Route: 048
     Dates: start: 20070803, end: 20071110
  3. YAZ [Suspect]
     Indication: ACNE
  4. HERBAL PREPARATION [Concomitant]
  5. YAZ [Suspect]
     Indication: PREMENSTRUAL SYNDROME
  6. CELEXA [Concomitant]

REACTIONS (7)
  - INJURY [None]
  - CHOLECYSTITIS CHRONIC [None]
  - PAIN [None]
  - ANXIETY [None]
  - DISCOMFORT [None]
  - EMOTIONAL DISTRESS [None]
  - CHOLELITHIASIS [None]
